FAERS Safety Report 22772448 (Version 8)
Quarter: 2024Q1

REPORT INFORMATION
  Report Type: Report from Study
  Country: US (occurrence: US)
  Receive Date: 20230801
  Receipt Date: 20240105
  Transmission Date: 20240410
  Serious: Yes (Other)
  Sender: FDA-Public Use
  Company Number: US-002147023-NVSC2023US167168

PATIENT
  Age: 28 Year
  Sex: Female

DRUGS (1)
  1. KESIMPTA [Suspect]
     Active Substance: OFATUMUMAB
     Indication: Relapsing multiple sclerosis
     Dosage: UNK
     Route: 065
     Dates: start: 20230714

REACTIONS (10)
  - Kidney infection [Unknown]
  - Blood pressure increased [Unknown]
  - Urticaria [Unknown]
  - Lip swelling [Unknown]
  - Pruritus [Unknown]
  - Influenza like illness [Unknown]
  - Post procedural infection [Unknown]
  - Herpes zoster [Unknown]
  - Nausea [Unknown]
  - Lip discolouration [Unknown]

NARRATIVE: CASE EVENT DATE: 20230721
